FAERS Safety Report 16288577 (Version 2)
Quarter: 2019Q2

REPORT INFORMATION
  Report Type: Report from Study
  Country: US (occurrence: US)
  Receive Date: 20190509
  Receipt Date: 20190529
  Transmission Date: 20190711
  Serious: No
  Sender: FDA-Public Use
  Company Number: US-AMGEN-USASP2019071309

PATIENT
  Age: 58 Year
  Sex: Female

DRUGS (4)
  1. MULTI VITAMIN [ARGININE HYDROCHLORIDE;ASCORBIC ACID;CALCIUM;CALCIUM PA [Concomitant]
  2. VITAMIN D [VITAMIN D NOS] [Concomitant]
     Active Substance: VITAMIN D NOS
  3. REPATHA [Suspect]
     Active Substance: EVOLOCUMAB
     Indication: BLOOD CHOLESTEROL INCREASED
     Dosage: 140 MILLIGRAM, Q2WK
     Route: 065
     Dates: start: 20190415
  4. VAGIFEM [Concomitant]
     Active Substance: ESTRADIOL

REACTIONS (6)
  - Headache [Recovered/Resolved]
  - Nasal congestion [Recovered/Resolved]
  - Drug hypersensitivity [Unknown]
  - Cough [Recovered/Resolved]
  - Dizziness [Recovered/Resolved]
  - Arthralgia [Recovering/Resolving]

NARRATIVE: CASE EVENT DATE: 2019
